FAERS Safety Report 7841311-7 (Version None)
Quarter: 2011Q4

REPORT INFORMATION
  Report Type: 
  Country: None (occurrence: None)
  Receive Date: 20111025
  Receipt Date: 20110920
  Transmission Date: 20120403
  Serious: Yes (Hospitalization)
  Sender: FDA-Public Use
  Company Number: ZA-UCBSA-013469

PATIENT
  Age: 55 Year
  Sex: Female
  Weight: 44 kg

DRUGS (5)
  1. CERTOLIZUMAB PEGOL [Suspect]
     Indication: CROHN'S DISEASE
     Dosage: STUDY: CDP870-32, NBR OF DOSES: 3
     Route: 058
     Dates: start: 20040605, end: 20040802
  2. CERTOLIZUMAB PEGOL [Suspect]
     Route: 058
     Dates: start: 20050112
  3. AKRINOR [Concomitant]
     Indication: HYPOTENSION
     Route: 048
     Dates: start: 20090605
  4. PENTASA [Concomitant]
     Indication: CROHN'S DISEASE
     Route: 048
     Dates: start: 20040601
  5. CERTOLIZUMAB PEGOL [Suspect]
     Dosage: STUDY: CDP870-32; NBR OF DOSES: 5
     Route: 058
     Dates: start: 20040830, end: 20041215

REACTIONS (2)
  - DYSPNOEA [None]
  - CAMPYLOBACTER GASTROENTERITIS [None]
